FAERS Safety Report 13614134 (Version 1)
Quarter: 2017Q2

REPORT INFORMATION
  Report Type: Spontaneous
  Country: JP (occurrence: JP)
  Receive Date: 20170606
  Receipt Date: 20170606
  Transmission Date: 20170830
  Serious: Yes (Other)
  Sender: FDA-Public Use
  Company Number: JP-MYLANLABS-2017M1033461

PATIENT

DRUGS (5)
  1. PREDNISOLONE. [Suspect]
     Active Substance: PREDNISOLONE
     Indication: PEMPHIGUS
     Dosage: 13MG/DAY
     Route: 065
  2. CICLOSPORIN [Suspect]
     Active Substance: CYCLOSPORINE
     Indication: PEMPHIGUS
     Dosage: 130MG/DAY
     Route: 065
  3. CICLOSPORIN [Interacting]
     Active Substance: CYCLOSPORINE
     Indication: PEMPHIGUS
     Dosage: 130MG/DAY
     Route: 065
  4. ITRACONAZOLE. [Interacting]
     Active Substance: ITRACONAZOLE
     Indication: ANTIFUNGAL TREATMENT
     Dosage: 200MG/DAY
     Route: 065
     Dates: start: 201401
  5. VORICONAZOLE. [Suspect]
     Active Substance: VORICONAZOLE
     Indication: ANTIFUNGAL TREATMENT
     Dosage: 300MG/DAY
     Route: 065

REACTIONS (5)
  - Skin infection [Recovered/Resolved]
  - Immunosuppressant drug level increased [Recovered/Resolved]
  - Drug interaction [Recovered/Resolved]
  - Alternaria infection [Recovered/Resolved]
  - Hepatic function abnormal [Unknown]
